FAERS Safety Report 7940709-6 (Version None)
Quarter: 2011Q4

REPORT INFORMATION
  Report Type: 
  Country: None (occurrence: None)
  Receive Date: 20111114
  Receipt Date: 20110718
  Transmission Date: 20120403
  Serious: Yes (Other)
  Sender: FDA-Public Use
  Company Number: 2011S1000464

PATIENT
  Age: 60 Year
  Sex: Male
  Weight: 105.45 kg

DRUGS (5)
  1. CUBICIN [Suspect]
     Indication: SEPSIS
     Dosage: 6 MG/KG;Q24H;IV
     Route: 042
     Dates: start: 20101225, end: 20110219
  2. CUBICIN [Suspect]
     Indication: DEVICE RELATED INFECTION
     Dosage: 6 MG/KG;Q24H;IV
     Route: 042
     Dates: start: 20101225, end: 20110219
  3. ASPIRIN [Concomitant]
  4. ZOLOFT [Concomitant]
  5. PRILOSEC [Concomitant]

REACTIONS (1)
  - EOSINOPHILIC PNEUMONIA [None]
